FAERS Safety Report 8316801-3 (Version None)
Quarter: 2012Q2

REPORT INFORMATION
  Report Type: 
  Country: None (occurrence: None)
  Receive Date: 20120425
  Receipt Date: 20120423
  Transmission Date: 20120825
  Serious: Yes (Other)
  Sender: FDA-Public Use
  Company Number: ADR-2010-9409

PATIENT
  Age: 19 Year
  Sex: Male

DRUGS (1)
  1. LIORESAL [Suspect]
     Indication: MUSCLE SPASTICITY
     Dosage: 1099.1 MCG, DAILY, INTR
     Route: 037

REACTIONS (8)
  - PYREXIA [None]
  - HAEMOGLOBIN DECREASED [None]
  - HAEMATOCRIT DECREASED [None]
  - DEVICE DAMAGE [None]
  - DEVICE CONNECTION ISSUE [None]
  - WHITE BLOOD CELL COUNT INCREASED [None]
  - INFECTION [None]
  - DRUG INEFFECTIVE [None]
